FAERS Safety Report 9324126 (Version 1)
Quarter: 2013Q2

REPORT INFORMATION
  Report Type: Spontaneous
  Country: TW (occurrence: TW)
  Receive Date: 20130603
  Receipt Date: 20130603
  Transmission Date: 20140414
  Serious: Yes (Hospitalization)
  Sender: FDA-Public Use
  Company Number: TW-OTSUKA-JP-2013-11839

PATIENT
  Age: 94 Year
  Sex: Female

DRUGS (3)
  1. SAMSCA [Suspect]
     Indication: HYPONATRAEMIA
     Dosage: 7.5 MG MILLIGRAM(S), QPM
     Route: 048
     Dates: start: 20130508, end: 20130508
  2. SAMSCA [Suspect]
     Indication: HEPATIC CIRRHOSIS
  3. SAMSCA [Suspect]
     Indication: INAPPROPRIATE ANTIDIURETIC HORMONE SECRETION

REACTIONS (3)
  - Altered state of consciousness [Not Recovered/Not Resolved]
  - PCO2 increased [Recovered/Resolved]
  - Wheezing [Unknown]
